FAERS Safety Report 4745669-7 (Version None)
Quarter: 2005Q3

REPORT INFORMATION
  Report Type: 
  Country: None (occurrence: None)
  Receive Date: 20050811
  Receipt Date: 20050802
  Transmission Date: 20060218
  Serious: Yes (Death, Other)
  Sender: FDA-Public Use
  Company Number: 2005110531

PATIENT
  Sex: Male

DRUGS (3)
  1. DOSTINEX [Suspect]
     Indication: PITUITARY TUMOUR
     Dosage: ORAL
     Route: 048
  2. NASACORT [Suspect]
     Indication: SEASONAL ALLERGY
     Dosage: ORAL
     Route: 048
  3. NASACORT [Suspect]
     Indication: SEASONAL ALLERGY
     Dosage: NASAL
     Route: 045

REACTIONS (4)
  - DRUG INTERACTION [None]
  - POLYTRAUMATISM [None]
  - ROAD TRAFFIC ACCIDENT [None]
  - SPORTS INJURY [None]
